FAERS Safety Report 13031116 (Version 1)
Quarter: 2016Q4

REPORT INFORMATION
  Report Type: Spontaneous
  Country: US (occurrence: US)
  Receive Date: 20161215
  Receipt Date: 20161215
  Transmission Date: 20170207
  Serious: Yes (Other)
  Sender: FDA-Public Use
  Company Number: US-ELI_LILLY_AND_COMPANY-US201612002359

PATIENT
  Age: 68 Year
  Sex: Male

DRUGS (7)
  1. CIALIS [Suspect]
     Active Substance: TADALAFIL
     Indication: ERECTILE DYSFUNCTION
     Dosage: 5 MG, QD
     Route: 065
  2. DOXYCYCLINE. [Concomitant]
     Active Substance: DOXYCYCLINE
     Dosage: UNK, UNKNOWN
     Route: 065
  3. CLOBETASOL [Interacting]
     Active Substance: CLOBETASOL
     Indication: GINGIVAL DISORDER
     Dosage: UNK, UNKNOWN
     Route: 061
     Dates: start: 201609
  4. NYSTATIN. [Interacting]
     Active Substance: NYSTATIN
     Dosage: 1 DF, QD
     Route: 048
  5. NYSTATIN. [Interacting]
     Active Substance: NYSTATIN
     Indication: LICHEN PLANUS
     Dosage: 1 DF, THREE TIMES A WEEK
     Route: 048
     Dates: start: 201609
  6. LIPITOR [Concomitant]
     Active Substance: ATORVASTATIN CALCIUM
     Dosage: UNK, UNKNOWN
     Route: 065
  7. NORTRIPTYLINE [Concomitant]
     Active Substance: NORTRIPTYLINE
     Dosage: UNK, UNKNOWN
     Route: 065

REACTIONS (6)
  - Lichen planus [Not Recovered/Not Resolved]
  - Gingival pain [Recovered/Resolved]
  - Drug interaction [Not Recovered/Not Resolved]
  - Therapeutic response decreased [Not Recovered/Not Resolved]
  - Nasal congestion [Recovered/Resolved]
  - Gingival disorder [Recovered/Resolved]

NARRATIVE: CASE EVENT DATE: 2016
